FAERS Safety Report 15828627 (Version 1)
Quarter: 2019Q1

REPORT INFORMATION
  Report Type: Spontaneous
  Country: US (occurrence: US)
  Receive Date: 20190115
  Receipt Date: 20190115
  Transmission Date: 20190417
  Serious: Yes (Other)
  Sender: FDA-Public Use
  Company Number: US-REGENERON PHARMACEUTICALS, INC.-2018-18745

PATIENT

DRUGS (3)
  1. EYLEA [Suspect]
     Active Substance: AFLIBERCEPT
     Indication: PRODUCT USED FOR UNKNOWN INDICATION
     Dosage: UNK
     Route: 031
     Dates: end: 20151118
  2. EYLEA [Suspect]
     Active Substance: AFLIBERCEPT
     Dosage: DOSE #8
     Route: 031
     Dates: start: 20151118, end: 20151118
  3. EYLEA [Suspect]
     Active Substance: AFLIBERCEPT
     Dosage: DOSE #7, LAST PRIOR EVENT
     Route: 031
     Dates: start: 20150909, end: 20150909

REACTIONS (1)
  - Eye inflammation [Unknown]
